FAERS Safety Report 6828238-4 (Version None)
Quarter: 2010Q3

REPORT INFORMATION
  Report Type: 
  Country: None (occurrence: None)
  Receive Date: 20100708
  Receipt Date: 20100708
  Transmission Date: 20110219
  Serious: Yes (Hospitalization)
  Sender: FDA-Public Use
  Company Number: None

PATIENT
  Age: 78 Year
  Sex: Male
  Weight: 117.93 kg

DRUGS (4)
  1. WARFARIN SODIUM [Suspect]
     Indication: ATRIAL FIBRILLATION
     Dosage: 3.9 MG PM PO
     Route: 048
     Dates: start: 20091001
  2. WARFARIN SODIUM [Suspect]
     Indication: PULMONARY EMBOLISM
     Dosage: 3.9 MG PM PO
     Route: 048
     Dates: start: 20091001
  3. ASPIRIN [Suspect]
     Indication: ATRIAL FIBRILLATION
     Dosage: 81 MG EVERY DAY PO
     Route: 048
  4. ASPIRIN [Suspect]
     Indication: CARDIOVASCULAR EVENT PROPHYLAXIS
     Dosage: 81 MG EVERY DAY PO
     Route: 048

REACTIONS (3)
  - ANAEMIA [None]
  - DIVERTICULUM [None]
  - RECTAL HAEMORRHAGE [None]
